FAERS Safety Report 15918591 (Version 1)
Quarter: 2019Q1

REPORT INFORMATION
  Report Type: Spontaneous
  Country: US (occurrence: US)
  Receive Date: 20190205
  Receipt Date: 20190205
  Transmission Date: 20190417
  Serious: Yes (Other)
  Sender: FDA-Public Use
  Company Number: US-SAMSUNG BIOEPIS-SB-2019-02130

PATIENT

DRUGS (2)
  1. METHOTREXATE. [Suspect]
     Active Substance: METHOTREXATE
     Indication: PRODUCT USED FOR UNKNOWN INDICATION
     Dosage: UNKNOWN
     Route: 065
  2. RENFLEXIS [Suspect]
     Active Substance: INFLIXIMAB-ABDA
     Indication: RHEUMATOID ARTHRITIS
     Dosage: UNKNOWN
     Route: 065
     Dates: start: 20181112

REACTIONS (15)
  - Pain [Unknown]
  - Sialoadenitis [Unknown]
  - Asthenia [Unknown]
  - Weight increased [Unknown]
  - Immunosuppression [Unknown]
  - Fatigue [Unknown]
  - Alopecia [Unknown]
  - Dysgraphia [Unknown]
  - Headache [Unknown]
  - Arthralgia [Unknown]
  - Feeling jittery [Unknown]
  - Oropharyngeal pain [Unknown]
  - Viral infection [Unknown]
  - Muscle spasms [Unknown]
  - Pneumonia [Unknown]
